FAERS Safety Report 8076898-5 (Version None)
Quarter: 2012Q1

REPORT INFORMATION
  Report Type: 
  Country: None (occurrence: None)
  Receive Date: 20120127
  Receipt Date: 20120120
  Transmission Date: 20120608
  Serious: Yes (Hospitalization)
  Sender: FDA-Public Use
  Company Number: KR-ABBOTT-12P-090-0895214-00

PATIENT
  Sex: Male
  Weight: 63 kg

DRUGS (3)
  1. GLIPLIDE [Concomitant]
     Indication: CROHN'S DISEASE
     Route: 048
  2. PENTASA [Concomitant]
     Indication: CROHN'S DISEASE
     Route: 048
  3. HUMIRA [Suspect]
     Indication: CROHN'S DISEASE
     Route: 058
     Dates: start: 20120116

REACTIONS (2)
  - INCISION SITE ABSCESS [None]
  - PROCEDURAL SITE REACTION [None]
